FAERS Safety Report 24652430 (Version 1)
Quarter: 2024Q4

REPORT INFORMATION
  Report Type: Spontaneous
  Country: US (occurrence: None)
  Receive Date: 20241121
  Receipt Date: 20241121
  Transmission Date: 20250114
  Serious: Yes (Other)
  Sender: Public
  Company Number: None

PATIENT
  Age: 55 Year
  Sex: Male

DRUGS (1)
  1. THALOMID [Suspect]
     Active Substance: THALIDOMIDE
     Indication: Acute febrile neutrophilic dermatosis
     Dosage: 50MG QD  ORAL?
     Route: 048
     Dates: start: 20240812, end: 20240901

REACTIONS (3)
  - Drug ineffective [None]
  - Blood pressure decreased [None]
  - Treatment noncompliance [None]

NARRATIVE: CASE EVENT DATE: 20241121
